FAERS Safety Report 4304532-6 (Version None)
Quarter: 2004Q1

REPORT INFORMATION
  Report Type: 
  Country: None (occurrence: None)
  Receive Date: 20040224
  Receipt Date: 20040212
  Transmission Date: 20041129
  Serious: Yes (Life-Threatening, Hospitalization)
  Sender: FDA-Public Use
  Company Number: 04P-087-0249398-00

PATIENT
  Age: 62 Year
  Sex: Female

DRUGS (11)
  1. SEVOFLURANE [Suspect]
     Indication: ANAESTHESIA
     Dosage: 0.5-1.5%, ONCE, INHALATION
     Dates: start: 20040121, end: 20040121
  2. THIOPENTAL SODIUM [Concomitant]
  3. VECURONIUM BROMIDE [Concomitant]
  4. SULPERAZON [Concomitant]
  5. RINGER'S SOLUTION [Concomitant]
  6. VEEN D [Concomitant]
  7. ISOTONIC SOLUTIONS [Concomitant]
  8. HEPARIN SODIUM [Concomitant]
  9. ATROPINE SULFATE [Concomitant]
  10. NEOSTIGMINE METILSULFATE [Concomitant]
  11. POTACOL-R [Concomitant]

REACTIONS (15)
  - ALANINE AMINOTRANSFERASE INCREASED [None]
  - ANAESTHETIC COMPLICATION [None]
  - ASPARTATE AMINOTRANSFERASE INCREASED [None]
  - BLOOD GLUCOSE INCREASED [None]
  - C-REACTIVE PROTEIN INCREASED [None]
  - CHEST PAIN [None]
  - DYSPNOEA [None]
  - HAEMATOCRIT DECREASED [None]
  - HAEMOGLOBIN DECREASED [None]
  - HEPATIC FUNCTION ABNORMAL [None]
  - LOSS OF CONSCIOUSNESS [None]
  - POST PROCEDURAL COMPLICATION [None]
  - RESPIRATORY ARREST [None]
  - SHOCK [None]
  - WHITE BLOOD CELL COUNT INCREASED [None]
